FAERS Safety Report 23364020 (Version 1)
Quarter: 2024Q1

REPORT INFORMATION
  Report Type: Spontaneous
  Country: CN (occurrence: CN)
  Receive Date: 20240104
  Receipt Date: 20240104
  Transmission Date: 20240410
  Serious: Yes (Disabling)
  Sender: FDA-Public Use
  Company Number: CN-HALEON-CNCH2023APC067704

PATIENT

DRUGS (2)
  1. IBUPROFEN [Suspect]
     Active Substance: IBUPROFEN
     Indication: Upper respiratory tract infection
     Dosage: 0.3 G, QD
     Route: 048
     Dates: start: 20231115, end: 20231120
  2. IBUPROFEN [Suspect]
     Active Substance: IBUPROFEN
     Dosage: 0.3 G, QD
     Route: 048
     Dates: start: 20231128, end: 20231128

REACTIONS (7)
  - Drug eruption [Recovered/Resolved]
  - Rash [Recovered/Resolved]
  - Erythema [Recovered/Resolved]
  - Skin exfoliation [Recovered/Resolved]
  - Pruritus [Recovered/Resolved]
  - Drug hypersensitivity [Recovered/Resolved]
  - Skin lesion [Recovered/Resolved]

NARRATIVE: CASE EVENT DATE: 20231118
